FAERS Safety Report 9807343 (Version 1)
Quarter: 2014Q1

REPORT INFORMATION
  Report Type: Spontaneous
  Country: FR (occurrence: FR)
  Receive Date: 20140110
  Receipt Date: 20140110
  Transmission Date: 20141002
  Serious: Yes (Hospitalization)
  Sender: FDA-Public Use
  Company Number: FR-009507513-1401FRA001207

PATIENT
  Sex: Female

DRUGS (1)
  1. SINEMET 250 MG/25 MG COMPRIME SECABLE [Suspect]
     Indication: PRODUCT USED FOR UNKNOWN INDICATION
     Dosage: UNK
     Route: 048
     Dates: start: 20131002, end: 201310

REACTIONS (6)
  - Muscle rigidity [Unknown]
  - Fall [Unknown]
  - Balance disorder [Unknown]
  - Vomiting [Unknown]
  - Gait disturbance [Unknown]
  - Staring [Unknown]
